FAERS Safety Report 15562428 (Version 1)
Quarter: 2018Q4

REPORT INFORMATION
  Report Type: Spontaneous
  Country: UZ (occurrence: UZ)
  Receive Date: 20181029
  Receipt Date: 20181029
  Transmission Date: 20190205
  Serious: Yes (Death)
  Sender: FDA-Public Use
  Company Number: UZ-JNJFOC-20181026523

PATIENT
  Age: 66 Year
  Sex: Male
  Weight: 88 kg

DRUGS (1)
  1. BEDAQUILINE [Suspect]
     Active Substance: BEDAQUILINE
     Indication: TUBERCULOSIS
     Route: 048
     Dates: start: 20180630

REACTIONS (1)
  - Pulmonary haemorrhage [Fatal]

NARRATIVE: CASE EVENT DATE: 20180817
